FAERS Safety Report 14545311 (Version 3)
Quarter: 2018Q3

REPORT INFORMATION
  Report Type: Spontaneous
  Country: JP (occurrence: JP)
  Receive Date: 20180218
  Receipt Date: 20180820
  Transmission Date: 20181010
  Serious: Yes (Hospitalization, Other)
  Sender: FDA-Public Use
  Company Number: PHHY2018JP027185

PATIENT
  Age: 41 Year
  Sex: Female
  Weight: 48 kg

DRUGS (3)
  1. IMUSERA [Suspect]
     Active Substance: FINGOLIMOD HYDROCHLORIDE
     Dosage: 0.5 MG, ONCE EVERY FOUR DAYS
     Route: 048
     Dates: start: 20121019, end: 20170805
  2. IMUSERA [Suspect]
     Active Substance: FINGOLIMOD HYDROCHLORIDE
     Indication: MULTIPLE SCLEROSIS
     Dosage: 1 DF, QD IN THE MORNING
     Route: 048
  3. COPAXONE [Suspect]
     Active Substance: GLATIRAMER ACETATE
     Indication: PRODUCT USED FOR UNKNOWN INDICATION
     Route: 065
     Dates: start: 20171118

REACTIONS (6)
  - Lymphocyte count decreased [Recovered/Resolved]
  - Iron deficiency anaemia [Recovering/Resolving]
  - Multiple sclerosis relapse [Recovered/Resolved]
  - Cystitis [Recovered/Resolved]
  - Multiple sclerosis relapse [Recovering/Resolving]
  - Neurogenic bladder [Recovering/Resolving]

NARRATIVE: CASE EVENT DATE: 20121102
